FAERS Safety Report 6158918-8 (Version None)
Quarter: 2009Q2

REPORT INFORMATION
  Report Type: 
  Country: None (occurrence: None)
  Receive Date: 20090417
  Receipt Date: 20090415
  Transmission Date: 20091009
  Serious: Yes (Other)
  Sender: FDA-Public Use
  Company Number: US-MERCK-0904USA02130

PATIENT
  Sex: Female

DRUGS (2)
  1. FOSAMAX PLUS D [Suspect]
     Route: 048
  2. FOSAMAX [Suspect]
     Route: 048

REACTIONS (2)
  - DRUG INEFFECTIVE [None]
  - FRACTURE [None]
